FAERS Safety Report 10784083 (Version 1)
Quarter: 2015Q1

REPORT INFORMATION
  Report Type: Spontaneous
  Country: US (occurrence: US)
  Receive Date: 20150211
  Receipt Date: 20150211
  Transmission Date: 20150721
  Serious: No
  Sender: FDA-Public Use
  Company Number: US-GLAXOSMITHKLINE-A1014394A

PATIENT

DRUGS (8)
  1. NAPROXEN. [Concomitant]
     Active Substance: NAPROXEN
  2. PLAQUENIL [Concomitant]
     Active Substance: HYDROXYCHLOROQUINE SULFATE
  3. LUXIQ [Suspect]
     Active Substance: BETAMETHASONE VALERATE
     Indication: CUTANEOUS LUPUS ERYTHEMATOSUS
     Route: 061
     Dates: start: 201302, end: 201302
  4. BENLYSTA [Concomitant]
     Active Substance: BELIMUMAB
  5. OLUX-E [Suspect]
     Active Substance: CLOBETASOL PROPIONATE
     Indication: CUTANEOUS LUPUS ERYTHEMATOSUS
     Route: 061
     Dates: start: 2009
  6. CORTISONE [Concomitant]
     Active Substance: CORTISONE\HYDROCORTISONE
  7. BETAMETHASONE [Suspect]
     Active Substance: BETAMETHASONE
     Indication: PRODUCT USED FOR UNKNOWN INDICATION
     Route: 061
  8. CELLCEPT [Concomitant]
     Active Substance: MYCOPHENOLATE MOFETIL\MYCOPHENOLATE MOFETIL HYDROCHLORIDE

REACTIONS (7)
  - Drug ineffective [Unknown]
  - Product substitution issue [None]
  - Expired product administered [Unknown]
  - Product quality issue [Unknown]
  - Condition aggravated [Not Recovered/Not Resolved]
  - Cutaneous lupus erythematosus [None]
  - Product physical consistency issue [None]
